FAERS Safety Report 15760377 (Version 1)
Quarter: 2018Q4

REPORT INFORMATION
  Report Type: Report from Study
  Country: None (occurrence: RO)
  Receive Date: 20181226
  Receipt Date: 20181226
  Transmission Date: 20190205
  Serious: Yes (Other)
  Sender: FDA-Public Use
  Company Number: RO-ABBVIE-18K-135-2599738-00

PATIENT
  Age: 62 Year
  Sex: Female

DRUGS (4)
  1. LEFLUNOMIDE. [Concomitant]
     Active Substance: LEFLUNOMIDE
     Indication: RHEUMATOID ARTHRITIS
     Dosage: UNKNOWN
     Route: 048
  2. VIMOVO [Concomitant]
     Active Substance: ESOMEPRAZOLE MAGNESIUM\NAPROXEN
     Indication: RHEUMATOID ARTHRITIS
     Dosage: UNKNOWN
     Route: 048
  3. HUMIRA [Suspect]
     Active Substance: ADALIMUMAB
     Indication: RHEUMATOID ARTHRITIS
     Route: 058
     Dates: start: 20170715
  4. OPATANOL [Concomitant]
     Active Substance: OLOPATADINE
     Indication: EYE DISORDER
     Dosage: UNKNOWN
     Route: 048

REACTIONS (1)
  - Viral test positive [Not Recovered/Not Resolved]

NARRATIVE: CASE EVENT DATE: 201809
